FAERS Safety Report 7131641 (Version 2)
Quarter: 2013Q3

REPORT INFORMATION
  Report Type: Spontaneous
  Country: None (occurrence: None)
  Receive Date: 20090915
  Receipt Date: 20130709
  Transmission Date: 20140515
  Serious: Yes (Other)
  Sender: FDA-Public Use
  Company Number: AUR-APL-2009-00546

PATIENT
  Age: 75 Year
  Sex: 0

DRUGS (3)
  1. TORSEMIDE [Suspect]
     Indication: CARDIAC FAILURE
     Dosage: 20MG, DAILY,UNK
  2. ENALAPRIL [Suspect]
     Indication: CARDIAC FAILURE
     Dosage: 660MG, DAILY, UNK
  3. LITHIUM [Suspect]
     Indication: BIPOLAR DISORDER
     Dosage: 660 MG/DAY IN TWO DIVIDED DOSES (2 IN 1 D)

REACTIONS (9)
  - Renal failure acute [None]
  - Toxicity to various agents [None]
  - Depressed level of consciousness [None]
  - Hypertonia [None]
  - Chills [None]
  - Myoclonus [None]
  - Demyelination [None]
  - Gaze palsy [None]
  - Nephrogenic diabetes insipidus [None]
